FAERS Safety Report 5878548-2 (Version None)
Quarter: 2008Q3

REPORT INFORMATION
  Report Type: 
  Country: None (occurrence: None)
  Receive Date: 20080909
  Receipt Date: 20080825
  Transmission Date: 20090109
  Serious: Yes (Hospitalization)
  Sender: FDA-Public Use
  Company Number: 2008S1000319

PATIENT
  Age: 56 Year
  Sex: Female

DRUGS (3)
  1. ACITRETIN [Suspect]
     Indication: KERATOSIS FOLLICULAR
     Dosage: 50 MG; QD; PO;   30 MG;QD;PO
     Route: 048
  2. TAMOXIFEN CITRATE [Suspect]
     Indication: BREAST CANCER
     Dosage: 20 MG;QD
  3. TRIAMCINOLONE [Concomitant]

REACTIONS (6)
  - BRADYCARDIA [None]
  - DIZZINESS [None]
  - DRUG INTERACTION [None]
  - ELECTROCARDIOGRAM QT INTERVAL ABNORMAL [None]
  - FATIGUE [None]
  - ORTHOSTATIC HYPERTENSION [None]
